FAERS Safety Report 15550650 (Version 2)
Quarter: 2018Q4

REPORT INFORMATION
  Report Type: Spontaneous
  Country: US (occurrence: US)
  Receive Date: 20181025
  Receipt Date: 20181115
  Transmission Date: 20190205
  Serious: No
  Sender: FDA-Public Use
  Company Number: US-SA-2018SA293608

PATIENT
  Age: 68 Year
  Sex: Male

DRUGS (6)
  1. METOPROLOL SALT NOT SPECIFIED [Suspect]
     Active Substance: METOPROLOL
  2. CRESTOR [Suspect]
     Active Substance: ROSUVASTATIN CALCIUM
     Dosage: 40 MG
  3. PRALUENT [Suspect]
     Active Substance: ALIROCUMAB
     Dosage: 75 MG, QM
     Route: 058
     Dates: start: 2018
  4. PRALUENT [Suspect]
     Active Substance: ALIROCUMAB
     Dosage: 75 MG, QM
     Route: 058
     Dates: start: 2018
  5. PRALUENT [Suspect]
     Active Substance: ALIROCUMAB
     Dosage: 75 MG, QM
     Route: 058
     Dates: end: 201809
  6. PRALUENT [Suspect]
     Active Substance: ALIROCUMAB
     Indication: BLOOD CHOLESTEROL INCREASED
     Dosage: 150 UNK
     Route: 058
     Dates: start: 201802

REACTIONS (17)
  - Asthenia [Unknown]
  - Depression [Unknown]
  - Abdominal pain [Unknown]
  - Musculoskeletal chest pain [Unknown]
  - Hunger [Recovering/Resolving]
  - Palpitations [Unknown]
  - Exercise tolerance decreased [Unknown]
  - Low density lipoprotein increased [Recovered/Resolved]
  - Oropharyngeal pain [Unknown]
  - Product use issue [Unknown]
  - Nasopharyngitis [Unknown]
  - Pyrexia [Unknown]
  - Confusional state [Unknown]
  - Anxiety [Unknown]
  - Blood glucose decreased [Unknown]
  - Insomnia [Recovering/Resolving]
  - Feeling abnormal [Recovering/Resolving]

NARRATIVE: CASE EVENT DATE: 2018
